FAERS Safety Report 9926319 (Version 1)
Quarter: 2014Q1

REPORT INFORMATION
  Report Type: Spontaneous
  Country: US (occurrence: US)
  Receive Date: 20140226
  Receipt Date: 20140226
  Transmission Date: 20141002
  Serious: No
  Sender: FDA-Public Use
  Company Number: US-AMGEN-USASP2013083763

PATIENT
  Age: 54 Year
  Sex: Male
  Weight: 124.72 kg

DRUGS (7)
  1. ENBREL [Suspect]
     Indication: PRODUCT USED FOR UNKNOWN INDICATION
     Dosage: 50 MG, QWK
     Route: 058
     Dates: start: 20071101, end: 20131120
  2. MULTIVITAMINS, PLAIN [Concomitant]
     Dosage: UNK
  3. PREDNISONE [Concomitant]
     Dosage: 1 MG, UNK
  4. METHOTREXATE [Concomitant]
     Dosage: 2.5 MG, UNK
  5. FOLIC ACID [Concomitant]
     Dosage: UNK
  6. VITAMIN B 12 [Concomitant]
     Dosage: 500 MCG, UNK
  7. VITAMIN D3 [Concomitant]
     Dosage: 400 UNIT, UNK

REACTIONS (1)
  - Rheumatoid arthritis [Unknown]
